FAERS Safety Report 20908322 (Version 1)
Quarter: 2022Q2

REPORT INFORMATION
  Report Type: Spontaneous
  Country: US (occurrence: US)
  Receive Date: 20220603
  Receipt Date: 20220603
  Transmission Date: 20220720
  Serious: Yes (Other)
  Sender: FDA-Public Use
  Company Number: US-SUN PHARMACEUTICAL INDUSTRIES LTD-2022R1-338746

PATIENT
  Age: 5 Decade
  Sex: Male

DRUGS (1)
  1. SOTALOL [Suspect]
     Active Substance: SOTALOL
     Indication: Wolff-Parkinson-White syndrome
     Dosage: UNK
     Route: 065

REACTIONS (1)
  - Electrocardiogram QRS complex prolonged [Unknown]
